FAERS Safety Report 19985943 (Version 6)
Quarter: 2021Q4

REPORT INFORMATION
  Report Type: Report from Study
  Country: CN (occurrence: None)
  Receive Date: 20211022
  Receipt Date: 20211118
  Transmission Date: 20220303
  Serious: Yes (Death, Hospitalization)
  Sender: FDA-Public Use
  Company Number: CN-ROCHE-2931970

PATIENT
  Age: 62 Year
  Sex: Male
  Weight: 57 kg

DRUGS (24)
  1. ATEZOLIZUMAB [Suspect]
     Active Substance: ATEZOLIZUMAB
     Indication: Oesophageal squamous cell carcinoma
     Dosage: START DATE OF MOST RECENT DOSE OF STUDY DRUG PRIOR TO AE  AND SAE ON 17/SEP/2021
     Route: 041
     Dates: start: 20210827
  2. TIRAGOLUMAB [Suspect]
     Active Substance: TIRAGOLUMAB
     Indication: Oesophageal squamous cell carcinoma
     Dosage: START DATE OF MOST RECENT DOSE OF STUDY DRUG PRIOR TO AE AND SAE ON 17/SEP/2021
     Route: 042
     Dates: start: 20210827
  3. PACLITAXEL [Suspect]
     Active Substance: PACLITAXEL
     Indication: Oesophageal squamous cell carcinoma
     Dosage: START DATE OF MOST RECENT DOSE OF STUDY DRUG PRIOR TO AE AND SAE ON 17/SEP/2021?DOSE LAST STUDY DRUG
     Route: 042
     Dates: start: 20210827
  4. CISPLATIN [Suspect]
     Active Substance: CISPLATIN
     Indication: Oesophageal squamous cell carcinoma
     Dosage: START DATE OF MOST RECENT DOSE OF STUDY DRUG PRIOR TO AE AND SAE ON 17/SEP/2021?DOSE LAST STUDY DRUG
     Route: 042
     Dates: start: 20210827
  5. OMEPRAZOLE [Concomitant]
     Active Substance: OMEPRAZOLE
     Dates: start: 20210917, end: 20210917
  6. GLUTATHIONE [Concomitant]
     Active Substance: GLUTATHIONE
     Dates: start: 20210917, end: 20210917
  7. GLUTATHIONE [Concomitant]
     Active Substance: GLUTATHIONE
     Route: 042
     Dates: start: 20211014
  8. SODIUM BICARBONATE [Concomitant]
     Active Substance: SODIUM BICARBONATE
     Dates: start: 20210917, end: 20210917
  9. PALONOSETRON [Concomitant]
     Active Substance: PALONOSETRON
     Dates: start: 20210917, end: 20210917
  10. INSULIN NOS [Concomitant]
     Active Substance: INSULIN NOS
     Dates: start: 20210917, end: 20210917
  11. INSULIN NOS [Concomitant]
     Active Substance: INSULIN NOS
     Dates: start: 20211014, end: 20211015
  12. MANNITOL [Concomitant]
     Active Substance: MANNITOL
     Indication: Dehydration
     Dates: start: 20210917, end: 20210917
  13. PROTHROMBIN [Concomitant]
     Active Substance: PROTHROMBIN
  14. HUMAN PLASMA [Concomitant]
     Active Substance: HUMAN PLASMA
  15. SODIUM CHLORIDE [Concomitant]
     Active Substance: SODIUM CHLORIDE
  16. PROTHROMBIN COMPLEX CONCENTRATE NOS [Concomitant]
     Active Substance: COAGULATION FACTOR IX HUMAN\COAGULATION FACTOR VII HUMAN\COAGULATION FACTOR X HUMAN\PROTHROMBIN
  17. ADEMETIONINE [Concomitant]
     Active Substance: ADEMETIONINE
     Route: 042
     Dates: start: 20211014
  18. DEXTROSE [Concomitant]
     Active Substance: DEXTROSE
     Dates: start: 20211014
  19. VITAMIN K1 [Concomitant]
     Active Substance: PHYTONADIONE
     Dates: start: 20211015
  20. MOXALACTAM [Concomitant]
     Active Substance: MOXALACTAM
     Dates: start: 20211015
  21. DEXAMETHASONE [Concomitant]
     Active Substance: DEXAMETHASONE
     Route: 048
     Dates: start: 20210916, end: 20210916
  22. PANTOPRAZOLE [Concomitant]
     Active Substance: PANTOPRAZOLE
     Dates: start: 20210916, end: 20210916
  23. DIPHENHYDRAMINE [Concomitant]
     Active Substance: DIPHENHYDRAMINE
     Dates: start: 20210917, end: 20210917
  24. DEXTROSE\SODIUM CHLORIDE [Concomitant]
     Active Substance: DEXTROSE\SODIUM CHLORIDE
     Dates: start: 20210917, end: 20210917

REACTIONS (1)
  - Hepatic failure [Fatal]

NARRATIVE: CASE EVENT DATE: 20211008
